FAERS Safety Report 15762049 (Version 1)
Quarter: 2018Q4

REPORT INFORMATION
  Report Type: Spontaneous
  Country: IT (occurrence: IT)
  Receive Date: 20181226
  Receipt Date: 20181226
  Transmission Date: 20190205
  Serious: Yes (Hospitalization, Other)
  Sender: FDA-Public Use
  Company Number: IT-MYLANLABS-2018M1095400

PATIENT
  Age: 44 Year
  Sex: Male

DRUGS (5)
  1. LEVOFLOXACIN. [Suspect]
     Active Substance: LEVOFLOXACIN
     Indication: PNEUMONIA LEGIONELLA
     Dosage: 750 MILLIGRAM, QD
     Route: 042
  2. TAZOBACTAM SODIUM AND PIPERACILLIN SODIUM [Concomitant]
     Active Substance: PIPERACILLIN SODIUM\TAZOBACTAM SODIUM
     Indication: INFECTION
     Dosage: 13.5 GRAM, QD
     Route: 042
  3. RIFAMPICIN [Concomitant]
     Active Substance: RIFAMPIN
     Indication: PNEUMONIA LEGIONELLA
     Dosage: 900 MILLIGRAM, QD
  4. LEVOFLOXACIN. [Suspect]
     Active Substance: LEVOFLOXACIN
     Dosage: 1500 MILLIGRAM, QD
     Route: 042
  5. FLUCONAZOLE. [Concomitant]
     Active Substance: FLUCONAZOLE
     Dosage: 800 MILLIGRAM, QD
     Route: 042

REACTIONS (2)
  - Acute respiratory distress syndrome [Recovering/Resolving]
  - Eosinophilia [Recovered/Resolved]
